FAERS Safety Report 9620981 (Version 1)
Quarter: 2013Q4

REPORT INFORMATION
  Report Type: Report from Study
  Country: MX (occurrence: MX)
  Receive Date: 20131015
  Receipt Date: 20131015
  Transmission Date: 20140711
  Serious: Yes (Other)
  Sender: FDA-Public Use
  Company Number: PHHY2013MX114688

PATIENT
  Age: 68 Year
  Sex: Female

DRUGS (1)
  1. EXFORGE HCT [Suspect]
     Indication: HYPERTENSION
     Dosage: 1 DF, (VALS 160 MG, AMLO 5MG, HYDR 12.5 MG) DAILY
     Route: 048
     Dates: start: 201210, end: 20131008

REACTIONS (4)
  - Cerebral infarction [Recovered/Resolved]
  - Bipolar disorder [Not Recovered/Not Resolved]
  - Depression [Not Recovered/Not Resolved]
  - Local swelling [Not Recovered/Not Resolved]
